FAERS Safety Report 18648172 (Version 1)
Quarter: 2020Q4

REPORT INFORMATION
  Report Type: Other
  Country: US (occurrence: US)
  Receive Date: 20201222
  Receipt Date: 20201222
  Transmission Date: 20210114
  Serious: Yes (Other)
  Sender: FDA-Public Use
  Company Number: US-ROCHE-2638915

PATIENT
  Sex: Female
  Weight: 68.55 kg

DRUGS (3)
  1. ACTEMRA [Suspect]
     Active Substance: TOCILIZUMAB
     Indication: RHEUMATOID ARTHRITIS
     Dosage: INJECT 162MG SUBCUTANEOUSLY EVERY WEEK
     Route: 058
  2. METHOTREXATE. [Concomitant]
     Active Substance: METHOTREXATE
     Indication: RHEUMATOID ARTHRITIS
  3. ACTEMRA [Suspect]
     Active Substance: TOCILIZUMAB
     Dosage: EVERY OTHER WEEK
     Route: 058

REACTIONS (8)
  - Limb operation [Unknown]
  - Wheelchair user [Unknown]
  - Knee arthroplasty [Unknown]
  - Fall [Unknown]
  - Exposure to SARS-CoV-2 [Unknown]
  - White blood cell count decreased [Unknown]
  - Tibia fracture [Unknown]
  - Anaemia [Unknown]
